FAERS Safety Report 9690815 (Version 1)
Quarter: 2013Q4

REPORT INFORMATION
  Report Type: Spontaneous
  Country: US (occurrence: US)
  Receive Date: 20131115
  Receipt Date: 20131115
  Transmission Date: 20140711
  Serious: Yes (Hospitalization, Other)
  Sender: FDA-Public Use
  Company Number: US-UCBSA-103008

PATIENT
  Sex: 0

DRUGS (2)
  1. CIMZIA [Suspect]
     Dosage: UNKNOWN
  2. PREDNISONE [Concomitant]
     Dosage: UNKNOWN

REACTIONS (4)
  - Gastrointestinal obstruction [Unknown]
  - Pain [Unknown]
  - Crohn^s disease [Unknown]
  - Depression [Unknown]
